FAERS Safety Report 4292478-1 (Version None)
Quarter: 2004Q1

REPORT INFORMATION
  Report Type: 
  Country: None (occurrence: None)
  Receive Date: 20040211
  Receipt Date: 20040122
  Transmission Date: 20041129
  Serious: Yes (Life-Threatening)
  Sender: FDA-Public Use
  Company Number: PHBS2004ES01101

PATIENT
  Age: 36 Year
  Sex: Male

DRUGS (8)
  1. NEORAL [Suspect]
     Indication: RENAL TRANSPLANT
     Dosage: 260 MG/D
     Route: 048
     Dates: start: 20030320, end: 20030331
  2. RAPAMUNE [Suspect]
     Dosage: 5 MG/D
     Route: 048
     Dates: start: 20030211, end: 20030610
  3. PROGRAF [Concomitant]
     Dosage: 8 MG/D
     Route: 048
     Dates: start: 20030610
  4. PREDNISONE [Suspect]
     Dosage: 5 MG/D
     Route: 048
  5. NIPRINA [Suspect]
     Dosage: 10 MG/D
     Route: 048
     Dates: start: 19931126, end: 20030615
  6. ATORVASTATIN [Concomitant]
  7. OMEPRAZOLE [Concomitant]
  8. ENALAPRIL [Concomitant]

REACTIONS (3)
  - ANAEMIA [None]
  - AZOTAEMIA [None]
  - DIABETES MELLITUS [None]
